FAERS Safety Report 7710055-4 (Version None)
Quarter: 2011Q3

REPORT INFORMATION
  Report Type: 
  Country: None (occurrence: None)
  Receive Date: 20110825
  Receipt Date: 20110819
  Transmission Date: 20111222
  Serious: Yes (Other)
  Sender: FDA-Public Use
  Company Number: PHHY2011US66830

PATIENT
  Sex: Male

DRUGS (2)
  1. EXTAVIA [Suspect]
     Indication: MULTIPLE SCLEROSIS
     Dosage: 0.25 MG, QOD
     Route: 058
     Dates: start: 20100601
  2. FLOMAX [Concomitant]
     Dosage: UNK UKN, UNK

REACTIONS (5)
  - NEPHROLITHIASIS [None]
  - RENAL PAIN [None]
  - CHILLS [None]
  - CALCULUS BLADDER [None]
  - PAIN [None]
